FAERS Safety Report 4948266-3 (Version None)
Quarter: 2006Q1

REPORT INFORMATION
  Report Type: 
  Country: None (occurrence: None)
  Receive Date: 20060127
  Receipt Date: 20050216
  Transmission Date: 20060701
  Serious: Yes (Death)
  Sender: FDA-Public Use
  Company Number: 05-02-0265

PATIENT
  Age: 28 Year
  Sex: Male

DRUGS (1)
  1. CLOZAPINE [Suspect]
     Dosage: 700MG QD, ORAL
     Route: 048
     Dates: start: 20001101, end: 20050106

REACTIONS (1)
  - ROAD TRAFFIC ACCIDENT [None]
